FAERS Safety Report 4806938-5 (Version None)
Quarter: 2005Q4

REPORT INFORMATION
  Report Type: 
  Country: None (occurrence: None)
  Receive Date: 20051019
  Receipt Date: 20051006
  Transmission Date: 20060501
  Serious: Yes (Other)
  Sender: FDA-Public Use
  Company Number: 2005137632

PATIENT

DRUGS (1)
  1. CELECOXIB (CELECOXIB) [Suspect]
     Indication: JUVENILE ARTHRITIS

REACTIONS (2)
  - ANGIONEUROTIC OEDEMA [None]
  - URTICARIA [None]
